FAERS Safety Report 23524828 (Version 1)
Quarter: 2024Q1

REPORT INFORMATION
  Report Type: Spontaneous
  Country: US (occurrence: US)
  Receive Date: 20240215
  Receipt Date: 20240215
  Transmission Date: 20240409
  Serious: Yes (Hospitalization)
  Sender: FDA-Public Use
  Company Number: US-BRISTOL-MYERS SQUIBB COMPANY-2024-022282

PATIENT
  Age: 73 Year
  Sex: Female
  Weight: 52.16 kg

DRUGS (1)
  1. REVLIMID [Suspect]
     Active Substance: LENALIDOMIDE
     Indication: 5q minus syndrome
     Dosage: 3WKSON,1OFF
     Route: 048

REACTIONS (3)
  - Blood pressure decreased [Not Recovered/Not Resolved]
  - Blood pressure abnormal [Unknown]
  - Off label use [Unknown]
